FAERS Safety Report 8052823-8 (Version None)
Quarter: 2012Q1

REPORT INFORMATION
  Report Type: 
  Country: None (occurrence: None)
  Receive Date: 20120118
  Receipt Date: 20120115
  Transmission Date: 20120608
  Serious: Yes (Death, Other)
  Sender: FDA-Public Use
  Company Number: PHHY2010CA07125

PATIENT
  Sex: Female
  Weight: 60 kg

DRUGS (7)
  1. RIVASTIGMINE [Suspect]
     Dosage: 9.5 MG, QD
     Route: 062
  2. RINA D [Concomitant]
     Dosage: 400 MG, DAILY
  3. PAROXETINE [Concomitant]
     Dosage: 10 MG, DAILY
  4. RIVASTIGMINE [Suspect]
     Indication: DEMENTIA ALZHEIMER'S TYPE
     Dosage: 4.6 MG, QD
     Route: 062
     Dates: start: 20091103
  5. FOSAMAX [Concomitant]
     Dosage: 70 MG, QW
  6. INDERAL [Concomitant]
     Dosage: 80 MG, DAILY
  7. CALCIUM [Concomitant]
     Dosage: 500 MG, UNK

REACTIONS (3)
  - ARRHYTHMIA [None]
  - MALAISE [None]
  - INFARCTION [None]
